FAERS Safety Report 12563568 (Version 2)
Quarter: 2016Q3

REPORT INFORMATION
  Report Type: Report from Study
  Country: US (occurrence: US)
  Receive Date: 20160715
  Receipt Date: 20160804
  Transmission Date: 20161109
  Serious: Yes (Hospitalization, Other)
  Sender: FDA-Public Use
  Company Number: US-BIOGEN-2016BI00265609

PATIENT
  Sex: Female

DRUGS (1)
  1. AVONEX [Suspect]
     Active Substance: INTERFERON BETA-1A
     Indication: MULTIPLE SCLEROSIS
     Route: 065

REACTIONS (7)
  - Constipation [Not Recovered/Not Resolved]
  - Pain [Unknown]
  - Malaise [Unknown]
  - Road traffic accident [Recovered/Resolved]
  - Hypoacusis [Not Recovered/Not Resolved]
  - Haemorrhage [Not Recovered/Not Resolved]
  - Colectomy [Unknown]
